FAERS Safety Report 15831840 (Version 1)
Quarter: 2018Q4

REPORT INFORMATION
  Report Type: Spontaneous
  Country: US (occurrence: US)
  Receive Date: 20181219
  Receipt Date: 20181219
  Transmission Date: 20190205
  Serious: No
  Sender: FDA-Public Use
  Company Number: None

PATIENT
  Age: 64 Year
  Sex: Male

DRUGS (3)
  1. ETOPOSIDE. [Suspect]
     Active Substance: ETOPOSIDE
  2. NIVOLUMAB [Suspect]
     Active Substance: NIVOLUMAB
  3. CARBOPLATIN. [Suspect]
     Active Substance: CARBOPLATIN

REACTIONS (3)
  - Anaemia [None]
  - Faeces discoloured [None]
  - Packed red blood cell transfusion [None]

NARRATIVE: CASE EVENT DATE: 20181213
